FAERS Safety Report 9501358 (Version 1)
Quarter: 2013Q1

REPORT INFORMATION
  Report Type: Spontaneous
  Country: US (occurrence: None)
  Receive Date: 20130107
  Receipt Date: 20130107
  Transmission Date: 20140127
  Serious: No
  Sender: FDA-Public Use
  Company Number: PHEH2012US019560

PATIENT
  Age: 49 Year
  Sex: Female
  Weight: 68 kg

DRUGS (5)
  1. GILENYA [Suspect]
     Indication: MULTIPLE SCLEROSIS
     Route: 048
     Dates: start: 20120924
  2. AMPYRA (FAMPRIDINE) [Concomitant]
  3. LOESTRIN (ETHINYLESTRADIOL, NORESTHISTERONE ACETATE) [Concomitant]
  4. VESICARE (SOLIFENACIN) [Concomitant]
  5. VITAMIN D (ERGOCALCIFEROL) [Concomitant]

REACTIONS (1)
  - Insomnia [None]
